FAERS Safety Report 7112667-8 (Version None)
Quarter: 2010Q4

REPORT INFORMATION
  Report Type: 
  Country: None (occurrence: None)
  Receive Date: 20101119
  Receipt Date: 20101105
  Transmission Date: 20110411
  Serious: Yes (Hospitalization)
  Sender: FDA-Public Use
  Company Number: PHHY2010BR75675

PATIENT
  Sex: Female

DRUGS (5)
  1. DIOVAN [Suspect]
     Indication: HYPERTENSION
     Dosage: 320 MG, ONCE A DAY
     Route: 048
     Dates: start: 20080101
  2. DIOVAN [Suspect]
     Dosage: 320 MG, UNK
  3. AMIODARONE [Concomitant]
     Dosage: 200 MG, ONE TABLET DAILY
     Route: 048
  4. METFORMIN HCL [Concomitant]
     Indication: DIABETES MELLITUS
     Dosage: 850 MG, TWO TABLET A DAY
     Route: 048
     Dates: start: 19950101
  5. OMEPRAZOLE [Concomitant]
     Dosage: 40 MG, ONE TABLET DAILY
     Route: 048

REACTIONS (2)
  - BLOOD PRESSURE INADEQUATELY CONTROLLED [None]
  - HEART RATE INCREASED [None]
